FAERS Safety Report 4896204-4 (Version None)
Quarter: 2006Q1

REPORT INFORMATION
  Report Type: 
  Country: None (occurrence: None)
  Receive Date: 20060126
  Receipt Date: 20051230
  Transmission Date: 20060701
  Serious: Yes (Death, Hospitalization)
  Sender: FDA-Public Use
  Company Number: 2006BI000077

PATIENT
  Age: 52 Year
  Sex: Male
  Weight: 77.1115 kg

DRUGS (3)
  1. AVONEX [Suspect]
     Indication: MULTIPLE SCLEROSIS
     Dosage: 30 UG; QW; IM
     Route: 030
     Dates: start: 20050920, end: 20051130
  2. AVONEX [Suspect]
     Indication: MULTIPLE SCLEROSIS
     Dosage: 30 UG; QW; IM
     Route: 030
     Dates: start: 20051214
  3. XANAX [Concomitant]

REACTIONS (14)
  - ARTHRALGIA [None]
  - BACK PAIN [None]
  - CHROMATURIA [None]
  - CONSTIPATION [None]
  - EYE ROLLING [None]
  - INFLUENZA LIKE ILLNESS [None]
  - INFREQUENT BOWEL MOVEMENTS [None]
  - MUSCLE SPASMS [None]
  - NEUROGENIC BLADDER [None]
  - PYREXIA [None]
  - SPEECH DISORDER [None]
  - THROAT TIGHTNESS [None]
  - URINARY TRACT INFECTION [None]
  - VOMITING [None]
